FAERS Safety Report 6247669-7 (Version None)
Quarter: 2009Q2

REPORT INFORMATION
  Report Type: 
  Country: None (occurrence: None)
  Receive Date: 20090626
  Receipt Date: 20090616
  Transmission Date: 20091009
  Serious: Yes (Hospitalization)
  Sender: FDA-Public Use
  Company Number: FR-ELI_LILLY_AND_COMPANY-FR200906003534

PATIENT
  Sex: Female
  Weight: 3.63 kg

DRUGS (1)
  1. PROZAC [Suspect]
     Dosage: 20 MG, DAILY (1/D)
     Route: 064
     Dates: end: 20090330

REACTIONS (8)
  - AGITATION [None]
  - DRUG EXPOSURE DURING PREGNANCY [None]
  - EYE MOVEMENT DISORDER [None]
  - HYPERTONIA [None]
  - INFANTILE COLIC [None]
  - MYDRIASIS [None]
  - NEONATAL DISORDER [None]
  - TREMOR [None]
